FAERS Safety Report 5523293-6 (Version None)
Quarter: 2007Q4

REPORT INFORMATION
  Report Type: 
  Country: None (occurrence: None)
  Receive Date: 20071121
  Receipt Date: 20071115
  Transmission Date: 20080405
  Serious: Yes (Other)
  Sender: FDA-Public Use
  Company Number: GB-AVENTIS-200720600GDDC

PATIENT
  Age: 80 Year
  Sex: Female
  Weight: 51.35 kg

DRUGS (2)
  1. LEFLUNOMIDE [Suspect]
     Route: 048
     Dates: start: 20070601, end: 20071001
  2. CELEBREX [Concomitant]
     Dosage: DOSE: UNK

REACTIONS (3)
  - CONTUSION [None]
  - NAUSEA [None]
  - WEIGHT DECREASED [None]
